FAERS Safety Report 6104483-0 (Version None)
Quarter: 2009Q1

REPORT INFORMATION
  Report Type: 
  Country: None (occurrence: None)
  Receive Date: 20090305
  Receipt Date: 20090226
  Transmission Date: 20090719
  Serious: Yes (Hospitalization)
  Sender: FDA-Public Use
  Company Number: FR-B.I. PHARMACEUTICALS,INC./RIDGEFIELD-2009-FF-00147FF

PATIENT
  Sex: Female

DRUGS (5)
  1. MICARDIS HCT [Suspect]
     Indication: HYPERTENSION
     Route: 048
     Dates: end: 20090109
  2. LYRICA [Suspect]
     Indication: NEURALGIA
     Dosage: 300MG
     Route: 048
     Dates: end: 20090108
  3. TAHOR [Concomitant]
     Indication: DYSLIPIDAEMIA
     Dosage: 20MG
     Route: 048
  4. PREVISCAN [Concomitant]
     Indication: VENOUS THROMBOSIS
     Dosage: .75MG
     Route: 048
  5. SOTALOL HCL [Concomitant]
     Indication: HYPERTENSION
     Dosage: 160MG
     Route: 048
     Dates: end: 20090115

REACTIONS (3)
  - DYSKINESIA [None]
  - FALL [None]
  - HEAD TITUBATION [None]
